FAERS Safety Report 9510027 (Version 1)
Quarter: 2013Q3

REPORT INFORMATION
  Report Type: Spontaneous
  Country: US (occurrence: US)
  Receive Date: 20130909
  Receipt Date: 20130909
  Transmission Date: 20140515
  Serious: No
  Sender: FDA-Public Use
  Company Number: US-BRISTOL-MYERS SQUIBB COMPANY-17160854

PATIENT
  Age: 51 Year
  Sex: Female

DRUGS (16)
  1. ABILIFY [Suspect]
  2. EFFEXOR XR [Concomitant]
     Dates: start: 20110309
  3. ALBUTEROL INHALER [Concomitant]
     Dates: start: 20110608
  4. AMBIEN [Concomitant]
     Dates: start: 20110912
  5. CARVEDILOL [Concomitant]
     Dates: start: 20110309
  6. CIPROFLOXACIN [Concomitant]
     Dates: start: 20111216
  7. FLONASE [Concomitant]
     Dates: start: 20110525
  8. HALDOL [Concomitant]
     Dates: start: 20110309
  9. HUMULIN 70/30 [Concomitant]
     Dates: start: 20111216
  10. LANTUS [Concomitant]
     Dosage: 1DF=100UNITS
     Route: 058
     Dates: start: 20111216
  11. LISINOPRIL [Concomitant]
     Dates: start: 20110608
  12. NORVASC [Concomitant]
     Dates: start: 20110608
  13. OXAPROZIN [Concomitant]
     Dates: start: 20111216
  14. VISTARIL [Concomitant]
     Dates: start: 20110309
  15. WELLBUTRIN [Concomitant]
     Dates: start: 20110608
  16. ZYRTEC [Concomitant]
     Dates: start: 20110525

REACTIONS (1)
  - Hypersensitivity [Unknown]
